FAERS Safety Report 4322299-2 (Version None)
Quarter: 2004Q1

REPORT INFORMATION
  Report Type: 
  Country: None (occurrence: None)
  Receive Date: 20040323
  Receipt Date: 20040323
  Transmission Date: 20041129
  Serious: Yes (Death)
  Sender: FDA-Public Use
  Company Number: None

PATIENT
  Age: 72 Year
  Sex: Male
  Weight: 57 kg

DRUGS (5)
  1. GENGRAF [Suspect]
     Indication: RENAL TRANSPLANT
     Dosage: 200 MG PO BID
     Route: 048
     Dates: start: 20030313, end: 20040302
  2. PREDNISONE [Concomitant]
  3. CELLCEPT [Concomitant]
  4. ATENOLOL [Concomitant]
  5. ACTONEL [Concomitant]

REACTIONS (3)
  - CIRCULATORY COLLAPSE [None]
  - MESOTHELIOMA MALIGNANT [None]
  - RESPIRATORY ARREST [None]
